FAERS Safety Report 4921369-5 (Version None)
Quarter: 2006Q1

REPORT INFORMATION
  Report Type: 
  Country: None (occurrence: None)
  Receive Date: 20060224
  Receipt Date: 20050926
  Transmission Date: 20060701
  Serious: Yes (Hospitalization, Other)
  Sender: FDA-Public Use
  Company Number: PHEH2005US10701

PATIENT
  Age: 62 Year
  Sex: Female

DRUGS (14)
  1. AREDIA [Suspect]
     Indication: PROPHYLAXIS
     Dosage: 90 MG, QMO
     Dates: start: 20000807, end: 20020107
  2. ZOMETA [Suspect]
     Indication: PROPHYLAXIS
     Dosage: 4 MG, QMO
     Dates: start: 20020129, end: 20020814
  3. PRINIVIL [Concomitant]
  4. COUMADIN [Concomitant]
  5. METOPROLOL [Concomitant]
     Dosage: 50 MG, QD
  6. PREVACID [Concomitant]
  7. LORAZEPAM [Concomitant]
     Dosage: 5 MG, UNK
  8. ZESTRIL [Concomitant]
  9. FLUOROURACIL [Concomitant]
     Indication: BREAST CANCER
  10. ADRIAMYCIN PFS [Concomitant]
     Indication: BREAST CANCER
  11. CYCLOPHOSPHAMIDE [Concomitant]
     Indication: BREAST CANCER
  12. ARIMIDEX [Concomitant]
     Indication: BREAST CANCER
  13. XELODA [Concomitant]
     Indication: BREAST CANCER
  14. FASLODEX [Concomitant]
     Indication: BREAST CANCER

REACTIONS (29)
  - ABSCESS [None]
  - ASCITES [None]
  - BLOOD CREATININE INCREASED [None]
  - BONE OPERATION [None]
  - CONSTIPATION [None]
  - DECREASED APPETITE [None]
  - DEHYDRATION [None]
  - DEPRESSION [None]
  - FAECALOMA [None]
  - FEELING ABNORMAL [None]
  - FISTULA [None]
  - HYPERBARIC OXYGEN THERAPY [None]
  - HYPERKALAEMIA [None]
  - INFLAMMATION [None]
  - INSOMNIA [None]
  - MALIGNANT NEOPLASM PROGRESSION [None]
  - ORAL PAIN [None]
  - ORAL SOFT TISSUE DISORDER [None]
  - OSTEOMYELITIS [None]
  - OSTEONECROSIS [None]
  - PARACENTESIS ABDOMEN [None]
  - PATHOLOGICAL FRACTURE [None]
  - PERIODONTAL DISEASE [None]
  - PURULENCE [None]
  - RENAL FAILURE [None]
  - RENAL FAILURE CHRONIC [None]
  - TOOTH EXTRACTION [None]
  - WEIGHT DECREASED [None]
  - WOUND DEBRIDEMENT [None]
